FAERS Safety Report 9105036 (Version 2)
Quarter: 2013Q2

REPORT INFORMATION
  Report Type: Spontaneous
  Country: US (occurrence: US)
  Receive Date: 20130220
  Receipt Date: 20130415
  Transmission Date: 20140414
  Serious: No
  Sender: FDA-Public Use
  Company Number: US-009507513-1302USA007265

PATIENT
  Sex: Female

DRUGS (7)
  1. FOSAMAX [Suspect]
     Indication: OSTEOPOROSIS
     Dosage: UNK
     Route: 048
  2. PREDNISONE [Concomitant]
     Dosage: UNK
     Dates: start: 201204
  3. FLUOXETINE [Concomitant]
     Dosage: UNK
     Dates: start: 201204
  4. FEXOFENADINE HYDROCHLORIDE [Concomitant]
     Dosage: UNK
     Dates: start: 201204
  5. AVALIDE [Concomitant]
     Dosage: UNK
     Dates: start: 201204
  6. DETROL [Concomitant]
     Dosage: UNK
     Dates: start: 201204
  7. PREMARIN [Concomitant]
     Dosage: UNK
     Dates: start: 201204

REACTIONS (2)
  - Tooth loss [Not Recovered/Not Resolved]
  - Dental implantation [Not Recovered/Not Resolved]
